FAERS Safety Report 19190050 (Version 1)
Quarter: 2021Q2

REPORT INFORMATION
  Report Type: Spontaneous
  Country: CN (occurrence: CN)
  Receive Date: 20210428
  Receipt Date: 20210428
  Transmission Date: 20210717
  Serious: Yes (Hospitalization)
  Sender: FDA-Public Use
  Company Number: CN-GLAXOSMITHKLINE-CN2021APC091964

PATIENT
  Age: 79 Year
  Sex: Male
  Weight: 62.5 kg

DRUGS (2)
  1. SERETIDE [Suspect]
     Active Substance: FLUTICASONE PROPIONATE\SALMETEROL XINAFOATE
     Dosage: 1 PUFF(S), BID 50/250UG 60 INHALATIONS
     Route: 055
  2. SERETIDE [Suspect]
     Active Substance: FLUTICASONE PROPIONATE\SALMETEROL XINAFOATE
     Indication: ASTHMA
     Dosage: 1 PUFF(S), BID 50/250UG 60 INHALATIONS DISCONTINUED
     Route: 055
     Dates: start: 202009

REACTIONS (2)
  - Inappropriate schedule of product administration [Unknown]
  - Disease recurrence [Recovered/Resolved]

NARRATIVE: CASE EVENT DATE: 20210413
